FAERS Safety Report 6765196-5 (Version None)
Quarter: 2010Q2

REPORT INFORMATION
  Report Type: 
  Country: None (occurrence: None)
  Receive Date: 20100610
  Receipt Date: 20100610
  Transmission Date: 20101027
  Serious: Yes (Other)
  Sender: FDA-Public Use
  Company Number: None

PATIENT
  Age: 51 Year
  Sex: Female
  Weight: 92.0802 kg

DRUGS (5)
  1. LAMOTRIGINE [Suspect]
     Indication: BIPOLAR DISORDER
     Dosage: 150 MG 2 PO QD PO
     Route: 048
     Dates: start: 20100604, end: 20100604
  2. NAPROXEN [Concomitant]
  3. METOPROLOL TARTRATE [Concomitant]
  4. LORATADINE [Concomitant]
  5. PHENTERMINE [Concomitant]

REACTIONS (6)
  - EAR PAIN [None]
  - HEADACHE [None]
  - LYMPHADENOPATHY [None]
  - PERIORBITAL OEDEMA [None]
  - RASH PRURITIC [None]
  - STEVENS-JOHNSON SYNDROME [None]
